FAERS Safety Report 11177217 (Version 2)
Quarter: 2016Q3

REPORT INFORMATION
  Report Type: Spontaneous
  Country: RU (occurrence: RU)
  Receive Date: 20150610
  Receipt Date: 20160829
  Transmission Date: 20161109
  Serious: Yes (Other)
  Sender: FDA-Public Use
  Company Number: RU-BAYER-2015-053991

PATIENT
  Age: 32 Year
  Sex: Female

DRUGS (2)
  1. YAZ [Suspect]
     Active Substance: DROSPIRENONE\ETHINYL ESTRADIOL
     Dosage: UNK
     Route: 048
  2. YAZ PLUS [Suspect]
     Active Substance: DROSPIRENONE\ETHINYL ESTRADIOL
     Dosage: UNK
     Route: 048

REACTIONS (20)
  - Drug dose omission [None]
  - Blood bilirubin increased [Recovered/Resolved]
  - Mood swings [None]
  - Product use issue [None]
  - Extra dose administered [None]
  - Adverse event [None]
  - Pregnancy on oral contraceptive [Recovered/Resolved]
  - Menstrual disorder [Recovered/Resolved]
  - Placental disorder [Recovered/Resolved]
  - Hyperaesthesia [None]
  - Abortion threatened [Recovered/Resolved]
  - Metrorrhagia [None]
  - Skin reaction [None]
  - Scar [Recovered/Resolved]
  - Abnormal withdrawal bleeding [None]
  - Libido decreased [None]
  - Retained placenta or membranes [Recovered/Resolved]
  - Exposure during pregnancy [None]
  - Premenstrual syndrome [None]
  - Premature baby [None]
